FAERS Safety Report 18605240 (Version 6)
Quarter: 2021Q2

REPORT INFORMATION
  Report Type: Spontaneous
  Country: JP (occurrence: JP)
  Receive Date: 20201211
  Receipt Date: 20210526
  Transmission Date: 20210717
  Serious: Yes (Hospitalization, Other)
  Sender: FDA-Public Use
  Company Number: JP-BRISTOL-MYERS SQUIBB COMPANY-BMS-2020-105589

PATIENT
  Age: 69 Year
  Sex: Male

DRUGS (7)
  1. SENNA [Concomitant]
     Active Substance: SENNA LEAF\SENNOSIDES\SENNOSIDES A AND B
     Indication: PRODUCT USED FOR UNKNOWN INDICATION
     Dosage: 1 DF, EVERYDAY GRAIN
     Route: 048
  2. OPDIVO [Suspect]
     Active Substance: NIVOLUMAB
     Indication: PLEURAL MESOTHELIOMA MALIGNANT
     Dosage: 240 MILLIGRAM
     Route: 041
     Dates: start: 20191114
  3. SPIRONOLACTONE. [Concomitant]
     Active Substance: SPIRONOLACTONE
     Indication: PERICARDIAL MESOTHELIOMA MALIGNANT
     Dosage: 25 MG, EVERYDAY
     Route: 048
  4. MOSAPRIDE CITRATE DIHYDRATE [Concomitant]
     Active Substance: MOSAPRIDE CITRATE DIHYDRATE
     Indication: PRODUCT USED FOR UNKNOWN INDICATION
     Dosage: 5 MG, Q8H
     Route: 048
  5. MAGNESIO [MAGNESIUM OXIDE] [Concomitant]
     Indication: PRODUCT USED FOR UNKNOWN INDICATION
     Dosage: 330 MG, Q6H
     Route: 048
  6. OPDIVO [Suspect]
     Active Substance: NIVOLUMAB
     Dosage: 240 MILLIGRAM
     Route: 041
     Dates: start: 20191128
  7. CLOPIDOGREL [CLOPIDOGREL BISULFATE] [Concomitant]
     Active Substance: CLOPIDOGREL BISULFATE
     Indication: PRODUCT USED FOR UNKNOWN INDICATION
     Dosage: UNK
     Route: 065

REACTIONS (5)
  - Lung disorder [Recovering/Resolving]
  - Influenza virus test positive [Unknown]
  - Enterococcal infection [Unknown]
  - Intentional product use issue [Unknown]
  - Proteus infection [Unknown]

NARRATIVE: CASE EVENT DATE: 20191114
